FAERS Safety Report 21740536 (Version 1)
Quarter: 2022Q4

REPORT INFORMATION
  Report Type: Spontaneous
  Country: US (occurrence: US)
  Receive Date: 20221216
  Receipt Date: 20221216
  Transmission Date: 20230113
  Serious: Yes (Hospitalization)
  Sender: FDA-Public Use
  Company Number: US-ELI_LILLY_AND_COMPANY-US202212005976

PATIENT
  Age: 72 Year
  Sex: Female

DRUGS (4)
  1. OLUMIANT [Suspect]
     Active Substance: BARICITINIB
     Indication: Arthritis
     Dosage: 2 MG, DAILY
     Route: 048
     Dates: start: 201911
  2. PROAIR HFA [Concomitant]
     Active Substance: ALBUTEROL SULFATE
     Indication: Product used for unknown indication
     Dosage: UNK
  3. QVAR [Concomitant]
     Active Substance: BECLOMETHASONE DIPROPIONATE
     Indication: Product used for unknown indication
     Dosage: UNK
  4. DILTIAZEM [Concomitant]
     Active Substance: DILTIAZEM
     Indication: Product used for unknown indication
     Dosage: UNK

REACTIONS (2)
  - Pneumonia influenzal [Unknown]
  - Thrombosis [Unknown]

NARRATIVE: CASE EVENT DATE: 20221020
